FAERS Safety Report 8304375-2 (Version None)
Quarter: 2012Q2

REPORT INFORMATION
  Report Type: 
  Country: None (occurrence: None)
  Receive Date: 20120423
  Receipt Date: 20120410
  Transmission Date: 20120825
  Serious: No
  Sender: FDA-Public Use
  Company Number: US-ELI_LILLY_AND_COMPANY-US201202000782

PATIENT
  Age: 28 Year
  Sex: Female
  Weight: 68.027 kg

DRUGS (5)
  1. CYMBALTA [Suspect]
     Indication: DEPRESSION
     Dosage: 90 MG, QD
  2. ATIVAN [Concomitant]
     Dosage: 5 MG, UNK
  3. CYMBALTA [Suspect]
     Dosage: 30 MG, BID
     Dates: end: 20120321
  4. CYMBALTA [Suspect]
     Dosage: 60 MG, QD
  5. CYMBALTA [Suspect]
     Dosage: 30 MG, QD

REACTIONS (4)
  - YELLOW SKIN [None]
  - PARAESTHESIA [None]
  - INTENTIONAL DRUG MISUSE [None]
  - LIVER FUNCTION TEST ABNORMAL [None]
